FAERS Safety Report 13765633 (Version 3)
Quarter: 2017Q4

REPORT INFORMATION
  Report Type: Spontaneous
  Country: US (occurrence: US)
  Receive Date: 20170718
  Receipt Date: 20171020
  Transmission Date: 20180320
  Serious: Yes (Other)
  Sender: FDA-Public Use
  Company Number: US-009507513-1707USA004650

PATIENT
  Age: 29 Year
  Sex: Female
  Weight: 96.4 kg

DRUGS (2)
  1. PNV [Concomitant]
     Indication: PREGNANCY
     Dosage: 1 DF, QD
     Route: 048
     Dates: start: 20170718
  2. NEXPLANON [Suspect]
     Active Substance: ETONOGESTREL
     Indication: CONTRACEPTION
     Dosage: 1 DF, ONE ROD EVERY 3 YEARS; ARM
     Route: 059
     Dates: start: 20160620

REACTIONS (8)
  - Obesity [Unknown]
  - Complication associated with device [Not Recovered/Not Resolved]
  - Complication of device insertion [Unknown]
  - Device deployment issue [Unknown]
  - Unintended pregnancy [Unknown]
  - Migration of implanted drug [Not Recovered/Not Resolved]
  - Pregnancy with implant contraceptive [Unknown]
  - Complication associated with device [Not Recovered/Not Resolved]

NARRATIVE: CASE EVENT DATE: 2017
